FAERS Safety Report 8264848-8 (Version None)
Quarter: 2012Q2

REPORT INFORMATION
  Report Type: 
  Country: None (occurrence: None)
  Receive Date: 20120406
  Receipt Date: 20120330
  Transmission Date: 20120825
  Serious: Yes (Hospitalization)
  Sender: FDA-Public Use
  Company Number: DE-SANOFI-AVENTIS-2012SA022763

PATIENT

DRUGS (1)
  1. CLOPIDOGREL BISULFATE [Suspect]
     Route: 065

REACTIONS (4)
  - HUNGER [None]
  - TREMOR [None]
  - HYPOGLYCAEMIA [None]
  - HYPERGLYCAEMIA [None]
